FAERS Safety Report 8102864-7 (Version None)
Quarter: 2012Q1

REPORT INFORMATION
  Report Type: 
  Country: None (occurrence: None)
  Receive Date: 20120127
  Receipt Date: 20120120
  Transmission Date: 20120608
  Serious: Yes (Disabling)
  Sender: FDA-Public Use
  Company Number: 2012SP004050

PATIENT
  Sex: Female

DRUGS (2)
  1. IMPLANON [Suspect]
     Indication: PRODUCT USED FOR UNKNOWN INDICATION
     Dates: start: 20090113
  2. PROZAC [Concomitant]

REACTIONS (5)
  - BACK PAIN [None]
  - FATIGUE [None]
  - HAEMORRHAGE [None]
  - MALAISE [None]
  - PAIN IN EXTREMITY [None]
